FAERS Safety Report 23154254 (Version 1)
Quarter: 2023Q4

REPORT INFORMATION
  Report Type: Report from Study
  Country: JP (occurrence: JP)
  Receive Date: 20231107
  Receipt Date: 20231107
  Transmission Date: 20240110
  Serious: Yes (Other)
  Sender: FDA-Public Use
  Company Number: JP-SUN PHARMACEUTICAL INDUSTRIES LTD-2023R1-416296

PATIENT
  Age: 72 Year
  Sex: Male

DRUGS (1)
  1. AMINOLEVULINIC ACID [Suspect]
     Active Substance: AMINOLEVULINIC ACID
     Indication: Transurethral bladder resection
     Dosage: 20.3 MILLIGRAM/KILOGRAM
     Route: 048

REACTIONS (3)
  - Hypotension [Unknown]
  - Nausea [Unknown]
  - Vomiting [Unknown]
